FAERS Safety Report 4306024-7 (Version None)
Quarter: 2004Q1

REPORT INFORMATION
  Report Type: 
  Country: None (occurrence: None)
  Receive Date: 20040225
  Receipt Date: 20040206
  Transmission Date: 20041129
  Serious: Yes (Hospitalization)
  Sender: FDA-Public Use
  Company Number: USA040258796

PATIENT
  Age: 11 Year
  Sex: Male
  Weight: 45 kg

DRUGS (3)
  1. STRATTERA [Suspect]
     Indication: ATTENTION DEFICIT/HYPERACTIVITY DISORDER
     Dosage: 70 MG/DAY
     Dates: start: 20030801
  2. CONCERTA [Concomitant]
  3. METADATE (METHYLPHENIDATE) [Concomitant]

REACTIONS (5)
  - AFFECT LABILITY [None]
  - APPENDICECTOMY [None]
  - DRUG INEFFECTIVE [None]
  - FATIGUE [None]
  - IMPULSIVE BEHAVIOUR [None]
